FAERS Safety Report 4810434-9 (Version None)
Quarter: 2005Q4

REPORT INFORMATION
  Report Type: 
  Country: None (occurrence: None)
  Receive Date: 20051025
  Receipt Date: 20051025
  Transmission Date: 20060501
  Serious: No
  Sender: FDA-Public Use
  Company Number: None

PATIENT
  Age: 74 Year
  Sex: Female
  Weight: 77.5651 kg

DRUGS (2)
  1. TAMOXIFEN CITRATE [Suspect]
     Indication: BREAST CANCER
     Dosage: 10 MG BID PO
     Route: 048
     Dates: start: 19911011, end: 19961115
  2. TAMOXIFEN CITRATE [Suspect]
     Indication: METASTASES TO LYMPH NODES
     Dosage: 10 MG BID PO
     Route: 048
     Dates: start: 19911011, end: 19961115

REACTIONS (1)
  - SARCOMA UTERUS [None]
